FAERS Safety Report 6406918-2 (Version None)
Quarter: 2009Q4

REPORT INFORMATION
  Report Type: 
  Country: None (occurrence: None)
  Receive Date: 20091020
  Receipt Date: 20091006
  Transmission Date: 20100525
  Serious: Yes (Hospitalization)
  Sender: FDA-Public Use
  Company Number: CH-ASTRAZENECA-2008PK01701

PATIENT
  Age: 61 Year
  Sex: Female

DRUGS (13)
  1. NEXIUM [Suspect]
     Indication: GASTROOESOPHAGEAL REFLUX DISEASE
     Route: 048
  2. AREDIA [Suspect]
     Indication: OSTEOPOROSIS
     Route: 040
     Dates: start: 20010101, end: 20061201
  3. PREDNISONE [Suspect]
     Indication: RENAL TRANSPLANT
     Route: 048
     Dates: start: 19940101
  4. CALCIMAGON-D3 [Concomitant]
     Indication: OSTEOPOROSIS
     Route: 048
  5. IMUREK [Concomitant]
     Indication: RENAL TRANSPLANT
     Route: 048
     Dates: start: 19940101
  6. SANDIMMUNE [Concomitant]
     Indication: RENAL TRANSPLANT
     Route: 048
     Dates: start: 19940101
  7. TAMESTA [Concomitant]
     Route: 048
  8. LEXOTANIL [Concomitant]
     Route: 048
  9. ACETAMINOPHEN [Concomitant]
     Indication: PAIN
     Route: 048
  10. ASPIRIN [Concomitant]
     Route: 048
  11. DIOVAN [Concomitant]
     Indication: ESSENTIAL HYPERTENSION
     Route: 048
  12. INEGY [Concomitant]
     Indication: HYPERCHOLESTEROLAEMIA
     Dosage: 20MG/10MG ONCE DAILY
     Route: 048
  13. SYSTEN [Concomitant]
     Indication: MENOPAUSAL DISORDER
     Route: 062

REACTIONS (1)
  - FEMUR FRACTURE [None]
